FAERS Safety Report 9508498 (Version 1)
Quarter: 2013Q1

REPORT INFORMATION
  Report Type: Spontaneous
  Country: US (occurrence: None)
  Receive Date: 20130305
  Receipt Date: 20130305
  Transmission Date: 20140127
  Serious: Yes (Other)
  Sender: FDA-Public Use
  Company Number: 163-21880-12082244

PATIENT
  Age: 71 Year
  Sex: Female

DRUGS (13)
  1. REVLIMID (LENALIDOMIDE) (25 MILLIGRAM, CAPSULES) [Suspect]
     Indication: PLASMA CELL MYELOMA
     Route: 048
     Dates: start: 200910
  2. CYMBALTA (DULOXETINE HYDROCHLORIDE) [Concomitant]
  3. COUMADIN (WARFARIN SODIUM) [Concomitant]
  4. SYNTHROID (LEVOTHYROXINE SODIUM) [Concomitant]
  5. ZOMETA (ZOLEDRONIC ACID) [Concomitant]
  6. GABAPENTIN [Concomitant]
  7. PRAVASTATIN [Concomitant]
  8. DIGOXIN [Concomitant]
  9. PRIMIDONE [Concomitant]
  10. METOPROLOL [Concomitant]
  11. KLOR-CON (POTASSIUM CHLORIDE) [Concomitant]
  12. VITAMIN D (ERGOCALCIFEROL) [Concomitant]
  13. AMOXICILLIN [Concomitant]

REACTIONS (4)
  - Protein total [None]
  - Weight increased [None]
  - Back pain [None]
  - Pleurisy [None]
